FAERS Safety Report 9685525 (Version 1)
Quarter: 2013Q4

REPORT INFORMATION
  Report Type: Report from Study
  Country: US (occurrence: US)
  Receive Date: 20131113
  Receipt Date: 20131113
  Transmission Date: 20140711
  Serious: Yes (Other)
  Sender: FDA-Public Use
  Company Number: US-BRISTOL-MYERS SQUIBB COMPANY-19788983

PATIENT
  Age: 9 Year
  Sex: Female
  Weight: 36 kg

DRUGS (4)
  1. IPILIMUMAB [Suspect]
     Indication: REFRACTORY CANCER
     Dosage: 169MG?25JUN13
     Route: 042
     Dates: start: 20130625
  2. OMEGA-3 [Concomitant]
  3. SEPTRA [Concomitant]
  4. VITAMIN D [Concomitant]

REACTIONS (1)
  - Neutrophil count decreased [Recovered/Resolved]
